FAERS Safety Report 12310186 (Version 1)
Quarter: 2016Q2

REPORT INFORMATION
  Report Type: Spontaneous
  Country: US (occurrence: US)
  Receive Date: 20160427
  Receipt Date: 20160427
  Transmission Date: 20160815
  Serious: Yes (Hospitalization)
  Sender: FDA-Public Use
  Company Number: US-ASTRAZENECA-2016SE43427

PATIENT
  Sex: Female

DRUGS (1)
  1. BRILINTA [Suspect]
     Active Substance: TICAGRELOR
     Indication: ACUTE CORONARY SYNDROME
     Route: 048

REACTIONS (11)
  - Asthenia [Unknown]
  - Contusion [Unknown]
  - Cold sweat [Unknown]
  - Somnolence [Unknown]
  - Heart rate decreased [Unknown]
  - Insomnia [Unknown]
  - Cyst [Unknown]
  - Tremor [Unknown]
  - Loss of consciousness [Unknown]
  - Hypotension [Unknown]
  - Dyspnoea [Unknown]
